FAERS Safety Report 25617398 (Version 1)
Quarter: 2025Q3

REPORT INFORMATION
  Report Type: Spontaneous
  Country: CN (occurrence: CN)
  Receive Date: 20250729
  Receipt Date: 20250729
  Transmission Date: 20251020
  Serious: Yes (Death, Life-Threatening, Hospitalization, Disabling, Other)
  Sender: AMGEN
  Company Number: CN-AMGEN-CHNSP2025147863

PATIENT

DRUGS (1)
  1. BLINCYTO [Suspect]
     Active Substance: BLINATUMOMAB
     Indication: Product used for unknown indication
     Route: 065

REACTIONS (74)
  - Unevaluable event [Unknown]
  - Death [Fatal]
  - Neoplasm malignant [Unknown]
  - Cytokine release syndrome [Unknown]
  - Acute lymphocytic leukaemia recurrent [Unknown]
  - B precursor type acute leukaemia [Unknown]
  - Acute lymphocytic leukaemia [Unknown]
  - B-cell type acute leukaemia [Unknown]
  - Tumour flare [Unknown]
  - Acute leukaemia [Unknown]
  - Acute lymphocytic leukaemia refractory [Unknown]
  - Leukaemia recurrent [Unknown]
  - Non-Hodgkin^s lymphoma [Unknown]
  - Acute biphenotypic leukaemia [Unknown]
  - Leukaemic infiltration renal [Unknown]
  - Leukaemia cutis [Unknown]
  - Chloroma [Unknown]
  - Lineage switch leukaemia [Unknown]
  - Metastases to muscle [Unknown]
  - Metastases to retroperitoneum [Unknown]
  - Metastases to spleen [Unknown]
  - Metastases to bone marrow [Unknown]
  - Pituitary tumour [Unknown]
  - Leukaemic infiltration [Unknown]
  - Myelodysplastic syndrome [Unknown]
  - Myeloid leukaemia [Unknown]
  - Diffuse large B-cell lymphoma [Unknown]
  - Chronic leukaemia [Unknown]
  - Philadelphia positive acute lymphocytic leukaemia [Unknown]
  - Diffuse large B-cell lymphoma recurrent [Unknown]
  - Germ cell neoplasm [Unknown]
  - Primary mediastinal large B-cell lymphoma recurrent [Unknown]
  - Metastases to nervous system [Unknown]
  - Disability [Unknown]
  - Brief resolved unexplained event [Unknown]
  - Blast cell count increased [Unknown]
  - Disease progression [Unknown]
  - Liver disorder [Unknown]
  - Benign neoplasm [Unknown]
  - Cyst [Unknown]
  - Polyp [Unknown]
  - Investigation [Unknown]
  - Malnutrition [Unknown]
  - Blood disorder [Unknown]
  - Lymphatic disorder [Unknown]
  - Infection [Unknown]
  - Infestation [Unknown]
  - Nervous system disorder [Unknown]
  - Reproductive tract disorder [Unknown]
  - Breast disorder [Unknown]
  - Renal disorder [Unknown]
  - Eye disorder [Unknown]
  - Mental disorder [Unknown]
  - Minimal residual disease [Unknown]
  - Haemangioma [Unknown]
  - Neoplasm recurrence [Unknown]
  - Tumour associated fever [Unknown]
  - Gastrointestinal neoplasm [Unknown]
  - Cardiac disorder [Unknown]
  - Ear disorder [Unknown]
  - Gastrointestinal disorder [Unknown]
  - Administration related reaction [Unknown]
  - Immune system disorder [Unknown]
  - Post procedural complication [Unknown]
  - Musculoskeletal disorder [Unknown]
  - Connective tissue disorder [Unknown]
  - Respiratory disorder [Unknown]
  - Mediastinal disorder [Unknown]
  - Skin disorder [Unknown]
  - Angiopathy [Unknown]
  - Surgery [Unknown]
  - Hepatobiliary disease [Unknown]
  - Endocrine disorder [Unknown]
  - Adverse event [Unknown]
